FAERS Safety Report 13405503 (Version 1)
Quarter: 2017Q2

REPORT INFORMATION
  Report Type: Spontaneous
  Country: US (occurrence: US)
  Receive Date: 20170405
  Receipt Date: 20170405
  Transmission Date: 20170830
  Serious: No
  Sender: FDA-Public Use
  Company Number: US-PFIZER INC-2017145357

PATIENT
  Age: 89 Year

DRUGS (5)
  1. METHYLPREDNISOLONE. [Suspect]
     Active Substance: METHYLPREDNISOLONE
     Dosage: UNK
  2. TIZANIDINE HYDROCHLORIDE. [Suspect]
     Active Substance: TIZANIDINE HYDROCHLORIDE
     Dosage: UNK
  3. KEFLEX [Suspect]
     Active Substance: CEPHALEXIN
     Dosage: UNK
  4. NABUMETONE. [Suspect]
     Active Substance: NABUMETONE
     Dosage: UNK
  5. PLETAL [Suspect]
     Active Substance: CILOSTAZOL
     Dosage: UNK

REACTIONS (1)
  - Drug hypersensitivity [Unknown]
